FAERS Safety Report 9854119 (Version 2)
Quarter: 2014Q1

REPORT INFORMATION
  Report Type: Report from Study
  Country: JP (occurrence: JP)
  Receive Date: 20140129
  Receipt Date: 20140129
  Transmission Date: 20141002
  Serious: Yes (Life-Threatening, Hospitalization, Other)
  Sender: FDA-Public Use
  Company Number: JP-BRISTOL-MYERS SQUIBB COMPANY-19158807

PATIENT
  Age: 63 Year
  Sex: Male
  Weight: 60.1 kg

DRUGS (25)
  1. SPRYCEL [Suspect]
     Indication: ACUTE LYMPHOCYTIC LEUKAEMIA
     Dosage: 16F-1MR13:100MG/1/D.2-19MR:70MG/2/D.3AP-24AP:70MG/1/D.4-16MY:100MG/1/D.11JUN-7JL:70MG/1/D.
     Route: 048
     Dates: start: 20130216
  2. LASIX [Suspect]
     Dosage: 8JL-9JL:IV, 17MY-3JUN:40MG/D ORAL
     Route: 042
     Dates: start: 20130517, end: 20130709
  3. METHOTREXATE [Concomitant]
     Dosage: INJ:INTRASPINAL-10MG:12F13,25MR,30AP,11JUN?IV:30AP
     Route: 042
     Dates: start: 20130212, end: 20130212
  4. CYLOCIDE [Concomitant]
     Dosage: IV:3200MG-13F-14F.1MY-2MY?IS:25MR,30AP,11JUN
     Route: 024
     Dates: start: 20130212, end: 20130212
  5. PREDONINE [Concomitant]
     Dosage: IS:30AP,11JU, ?PO:90MG 10JUN-16JUN.5-70MG 17JUN-23JUN.5-20MG 4AP-7AP13.100MG-25MR.40-80MG-1AP-3AP
     Route: 024
     Dates: start: 20130325, end: 20130325
  6. SOLU-MEDROL [Concomitant]
     Dosage: INJ.100MG-30AP-2MY13.
     Route: 042
     Dates: start: 20130212, end: 20130214
  7. ONCOVIN [Concomitant]
     Dosage: INJ.1.9MG-10JU13.
     Route: 042
     Dates: start: 20130325, end: 20130325
  8. DAUNOMYCIN [Concomitant]
     Dosage: INJ:45MG-10JUN13
     Route: 042
     Dates: start: 20130325, end: 20130325
  9. ENDOXAN INJ [Concomitant]
     Route: 042
     Dates: start: 20130325, end: 20130325
  10. ONCOVIN [Concomitant]
     Dosage: INJ.
     Route: 042
     Dates: start: 20130610, end: 20130610
  11. DIAMOX [Concomitant]
     Dosage: INJ
     Route: 042
     Dates: end: 20130214
  12. SOLU-CORTEF [Concomitant]
     Route: 042
     Dates: end: 20130215
  13. NEO-MINOPHAGEN C [Concomitant]
     Route: 042
     Dates: end: 20130225
  14. CUBICIN [Concomitant]
     Route: 042
     Dates: end: 20130227
  15. CRAVIT [Concomitant]
     Route: 048
     Dates: end: 20130222
  16. URSO [Concomitant]
     Route: 048
     Dates: end: 20130308
  17. CALONAL [Concomitant]
     Route: 048
     Dates: end: 20130501
  18. TRAMAL [Concomitant]
     Dosage: CAPS
     Route: 048
     Dates: start: 20130218, end: 20130302
  19. CYMBALTA [Concomitant]
     Dosage: CAP:1MR-18JUN-20MG
     Route: 048
     Dates: start: 20130619, end: 20130713
  20. JANUVIA [Concomitant]
     Route: 048
     Dates: start: 20130807
  21. BIOFERMIN [Concomitant]
     Route: 048
     Dates: start: 20130426, end: 20130622
  22. LASIX [Concomitant]
     Route: 042
     Dates: start: 20130605, end: 20130612
  23. FLUDARA [Concomitant]
     Route: 042
     Dates: start: 20130605, end: 20130605
  24. POLARAMINE [Concomitant]
     Route: 042
     Dates: start: 20130513, end: 20130513
  25. HUMULIN R [Concomitant]
     Route: 058
     Dates: start: 20130322, end: 20130815

REACTIONS (16)
  - Sepsis [Recovered/Resolved]
  - Multi-organ failure [Recovering/Resolving]
  - Gastrointestinal haemorrhage [Recovered/Resolved]
  - Hepatic failure [Recovering/Resolving]
  - Renal failure acute [Recovering/Resolving]
  - Hypernatraemia [Recovered/Resolved]
  - Disseminated intravascular coagulation [Recovering/Resolving]
  - Hyperglycaemia [Recovered/Resolved]
  - Febrile neutropenia [Recovered/Resolved]
  - Hypokalaemia [Recovered/Resolved]
  - Pancytopenia [Unknown]
  - Pulmonary oedema [Recovered/Resolved]
  - Cardiac failure [Unknown]
  - Anaemia [Recovered/Resolved]
  - Platelet count decreased [Recovered/Resolved]
  - White blood cell count decreased [Recovered/Resolved]
